FAERS Safety Report 9575063 (Version 1)
Quarter: 2013Q4

REPORT INFORMATION
  Report Type: Spontaneous
  Country: US (occurrence: US)
  Receive Date: 20131001
  Receipt Date: 20131001
  Transmission Date: 20140711
  Serious: No
  Sender: FDA-Public Use
  Company Number: US-009507513-1208USA001146

PATIENT
  Age: 81 Year
  Sex: Female

DRUGS (1)
  1. MK-9472 [Suspect]

REACTIONS (1)
  - Visual impairment [Recovered/Resolved]
